FAERS Safety Report 6198300-0 (Version None)
Quarter: 2009Q2

REPORT INFORMATION
  Report Type: 
  Country: None (occurrence: None)
  Receive Date: 20090521
  Receipt Date: 20090511
  Transmission Date: 20091009
  Serious: Yes (Other)
  Sender: FDA-Public Use
  Company Number: GB-ELI_LILLY_AND_COMPANY-GB200905002061

PATIENT
  Age: 47 Year
  Sex: Male

DRUGS (4)
  1. CYMBALTA [Suspect]
     Indication: DEPRESSION
     Dosage: 60 MG, UNK
     Dates: start: 20090501
  2. RISPERIDONE [Concomitant]
     Dosage: 2 MG, UNK
  3. FLUOXETINE HCL [Concomitant]
  4. ZYPREXA [Concomitant]

REACTIONS (1)
  - LOSS OF CONSCIOUSNESS [None]
